FAERS Safety Report 9456596 (Version 3)
Quarter: 2013Q3

REPORT INFORMATION
  Report Type: Spontaneous
  Country: IT (occurrence: None)
  Receive Date: 20130809
  Receipt Date: 20130905
  Transmission Date: 20140515
  Serious: Yes (Hospitalization)
  Sender: FDA-Public Use
  Company Number: 2013CP000096

PATIENT
  Age: 49 Year
  Sex: Male

DRUGS (10)
  1. PERFALGAN [Suspect]
     Indication: POSTOPERATIVE ANALGESIA
     Dosage: 4 GRAM: TOTAL: IV
     Route: 042
     Dates: start: 20130521, end: 20130522
  2. CEFAZOLINE [Suspect]
     Indication: ANTIBIOTIC PROPHYLAXIS
     Route: 042
     Dates: start: 20130521, end: 20130522
  3. PROPOFOL (PROPOFOL) [Suspect]
     Indication: ANAESTHESIA
     Route: 042
     Dates: start: 20130521, end: 2013
  4. REMIFENTANIL [Suspect]
     Indication: ANAESTHESIA
     Route: 042
     Dates: start: 20130521, end: 2013
  5. OMEPRAZOLE (OMEPRAZOLE) [Suspect]
     Indication: PRODUCT USED FOR UNKNOWN INDICATION
     Route: 042
     Dates: start: 20130521, end: 2013
  6. TORADOL (KETOROLAC TROMETHAMINE) [Suspect]
     Indication: POSTOPERATIVE ANALGESIA
     Route: 042
     Dates: start: 20130521, end: 20130522
  7. MORPHINE [Concomitant]
  8. ROCURONIUM BROMIDE [Suspect]
     Indication: ANAESTHESIA
     Route: 042
     Dates: start: 20130521, end: 2013
  9. BEMIPARIN SODIUM [Suspect]
     Indication: PROPHYLAXIS
     Route: 058
     Dates: start: 20130521, end: 20130524
  10. MORPHINE [Concomitant]

REACTIONS (4)
  - Renal failure acute [None]
  - Vomiting [None]
  - Pyrexia [None]
  - Respiratory tract inflammation [None]
